FAERS Safety Report 13484410 (Version 2)
Quarter: 2017Q2

REPORT INFORMATION
  Report Type: Spontaneous
  Country: GB (occurrence: GB)
  Receive Date: 20170425
  Receipt Date: 20170425
  Transmission Date: 20170830
  Serious: Yes (Congenital Anomaly)
  Sender: FDA-Public Use
  Company Number: GB-CIPLA LTD.-2017GB07263

PATIENT

DRUGS (7)
  1. RIZATRIPTAN. [Concomitant]
     Active Substance: RIZATRIPTAN
     Dosage: 100 MG, UNK, PUMP
     Route: 064
  2. FOLIC ACID. [Concomitant]
     Active Substance: FOLIC ACID
     Dosage: UNK
     Route: 064
  3. LAMOTRIGINE. [Concomitant]
     Active Substance: LAMOTRIGINE
     Dosage: 150 MG, BID
     Route: 064
  4. TOPIRAMATE. [Suspect]
     Active Substance: TOPIRAMATE
     Indication: MIGRAINE
     Dosage: UNK
     Route: 064
     Dates: start: 20160204
  5. PROPRANOLOL [Concomitant]
     Active Substance: PROPRANOLOL HYDROCHLORIDE
     Dosage: UNK
     Route: 064
  6. INSULIN [Concomitant]
     Active Substance: INSULIN NOS
     Dosage: UNK, PUMP
     Route: 064
  7. VITAMIN D [Concomitant]
     Active Substance: CHOLECALCIFEROL
     Dosage: UNK
     Route: 064

REACTIONS (8)
  - Fallot^s tetralogy [Not Recovered/Not Resolved]
  - Hydronephrosis [Not Recovered/Not Resolved]
  - Renal dysplasia [Not Recovered/Not Resolved]
  - Hypospadias [Not Recovered/Not Resolved]
  - Small for dates baby [Unknown]
  - Cleft lip and palate [Not Recovered/Not Resolved]
  - Anal atresia [Not Recovered/Not Resolved]
  - Placental insufficiency [Unknown]

NARRATIVE: CASE EVENT DATE: 20161014
